FAERS Safety Report 4311335-5 (Version None)
Quarter: 2004Q1

REPORT INFORMATION
  Report Type: 
  Country: None (occurrence: None)
  Receive Date: 20040302
  Receipt Date: 20040302
  Transmission Date: 20041129
  Serious: Yes (Hospitalization)
  Sender: FDA-Public Use
  Company Number: None

PATIENT
  Age: 60 Year
  Sex: Male

DRUGS (1)
  1. GATIFLOXACIN 400 MG [Suspect]
     Indication: CATHETER SITE INFECTION
     Dosage: 400 MG DAILY ORAL
     Route: 048
     Dates: start: 20031001, end: 20031006

REACTIONS (5)
  - BLOOD CREATININE INCREASED [None]
  - DISORIENTATION [None]
  - DYSKINESIA [None]
  - HYPERGLYCAEMIA [None]
  - TREMOR [None]
